FAERS Safety Report 7141483-6 (Version None)
Quarter: 2010Q4

REPORT INFORMATION
  Report Type: 
  Country: None (occurrence: None)
  Receive Date: 20101207
  Receipt Date: 20101202
  Transmission Date: 20110411
  Serious: Yes (Death, Other)
  Sender: FDA-Public Use
  Company Number: PHHY2010IE82054

PATIENT

DRUGS (4)
  1. CYCLOSPORINE [Suspect]
     Indication: HEART TRANSPLANT
     Dosage: 25 MG
  2. STEROIDS NOS [Suspect]
     Indication: HEART TRANSPLANT
  3. ASPIRIN [Concomitant]
     Dosage: 75 MG/DAY
  4. ATORVASTATIN CALCIUM [Concomitant]
     Dosage: 20 MG/DAY

REACTIONS (10)
  - ANGIOPATHY [None]
  - BLOOD CREATININE INCREASED [None]
  - CORONARY ARTERY STENOSIS [None]
  - HEART TRANSPLANT REJECTION [None]
  - HYPERTENSION [None]
  - IMMUNOSUPPRESSANT DRUG LEVEL DECREASED [None]
  - INTRACARDIAC THROMBUS [None]
  - LEFT VENTRICULAR DYSFUNCTION [None]
  - RENAL FAILURE CHRONIC [None]
  - VASCULITIS NECROTISING [None]
